FAERS Safety Report 26177545 (Version 1)
Quarter: 2025Q4

REPORT INFORMATION
  Report Type: Spontaneous
  Country: US (occurrence: US)
  Receive Date: 20251219
  Receipt Date: 20251219
  Transmission Date: 20260117
  Serious: No
  Sender: BRISTOL-MYERS SQUIBB COMPANY
  Company Number: US-BRISTOL-MYERS SQUIBB COMPANY-2025-169872

PATIENT
  Age: 72 Year
  Sex: Male

DRUGS (3)
  1. CAMZYOS [Suspect]
     Active Substance: MAVACAMTEN
     Indication: Hypertrophic cardiomyopathy
     Route: 048
  2. CAMZYOS [Suspect]
     Active Substance: MAVACAMTEN
  3. CAMZYOS [Suspect]
     Active Substance: MAVACAMTEN

REACTIONS (2)
  - Dyspnoea [Recovered/Resolved]
  - Feeling abnormal [Recovering/Resolving]

NARRATIVE: CASE EVENT DATE: 20250101
